FAERS Safety Report 25964853 (Version 2)
Quarter: 2025Q4

REPORT INFORMATION
  Report Type: Report from Study
  Country: EU (occurrence: EU)
  Receive Date: 20251027
  Receipt Date: 20251104
  Transmission Date: 20260118
  Serious: Yes (Other)
  Sender: PFIZER
  Company Number: EU-ROCHE-10000368881

PATIENT
  Age: 52 Year
  Sex: Female

DRUGS (6)
  1. PALBOCICLIB [Suspect]
     Active Substance: PALBOCICLIB
     Indication: Breast cancer female
     Dosage: UNK
     Route: 065
  2. PALBOCICLIB [Suspect]
     Active Substance: PALBOCICLIB
     Dosage: UNK
     Route: 065
     Dates: start: 20250821
  3. INAVOLISIB [Suspect]
     Active Substance: INAVOLISIB
     Indication: Breast cancer female
     Dosage: 9 MG, 1X/DAY
     Route: 065
     Dates: start: 20250725, end: 20250904
  4. INAVOLISIB [Suspect]
     Active Substance: INAVOLISIB
     Dosage: 6 MG 1X DAILY
  5. SERTRALINE [Concomitant]
     Active Substance: SERTRALINE HYDROCHLORIDE
     Dosage: 50 MG, 1X/DAY
  6. LOFLAZEPATO DE ETILO [Concomitant]
     Dosage: 2 MG

REACTIONS (2)
  - Acute kidney injury [Recovered/Resolved]
  - Diarrhoea [Recovered/Resolved]

NARRATIVE: CASE EVENT DATE: 20250824
